FAERS Safety Report 12530913 (Version 2)
Quarter: 2016Q3

REPORT INFORMATION
  Report Type: Spontaneous
  Country: US (occurrence: US)
  Receive Date: 20160706
  Receipt Date: 20160720
  Transmission Date: 20161109
  Serious: Yes (Hospitalization)
  Sender: FDA-Public Use
  Company Number: US-UNITED THERAPEUTICS-UNT-2016-010443

PATIENT
  Age: 28 Year
  Sex: Female
  Weight: 61.68 kg

DRUGS (2)
  1. REMODULIN [Suspect]
     Active Substance: TREPROSTINIL
     Indication: PULMONARY ARTERIAL HYPERTENSION
     Dosage: 0.020 ?G/KG, CONTINUING
     Route: 058
     Dates: start: 20160404
  2. ADCIRCA [Concomitant]
     Active Substance: TADALAFIL
     Indication: PRODUCT USED FOR UNKNOWN INDICATION

REACTIONS (11)
  - Drug dose omission [Unknown]
  - Palpitations [Unknown]
  - Dyspnoea [Unknown]
  - Infusion site induration [Unknown]
  - Stress [Unknown]
  - Infusion site erythema [Unknown]
  - Infusion site pustule [Unknown]
  - Dizziness [Unknown]
  - Presyncope [Unknown]
  - Infusion site oedema [Unknown]
  - Device issue [Unknown]

NARRATIVE: CASE EVENT DATE: 20160627
